FAERS Safety Report 22648304 (Version 1)
Quarter: 2023Q2

REPORT INFORMATION
  Report Type: Spontaneous
  Country: RU (occurrence: RU)
  Receive Date: 20230628
  Receipt Date: 20230628
  Transmission Date: 20230722
  Serious: Yes (Other)
  Sender: FDA-Public Use
  Company Number: RU-TAKEDA-2023TUS062698

PATIENT
  Age: 74 Year
  Sex: Male
  Weight: 75 kg

DRUGS (9)
  1. FEBUXOSTAT [Suspect]
     Active Substance: FEBUXOSTAT
     Indication: Hyperuricaemia
     Dosage: 80 MILLIGRAM, QD
     Route: 048
     Dates: start: 20230616, end: 20230616
  2. SPIRONOLACTONE [Concomitant]
     Active Substance: SPIRONOLACTONE
     Indication: Cardiac failure
     Dosage: 25 MILLIGRAM, QD
     Route: 048
     Dates: start: 20230602
  3. DAPTOMYCIN [Concomitant]
     Active Substance: DAPTOMYCIN
     Indication: Endocarditis enterococcal
     Dosage: 500 MILLIGRAM, QD
     Route: 041
     Dates: start: 20230609
  4. LOSARTAN POTASSIUM [Concomitant]
     Active Substance: LOSARTAN POTASSIUM
     Indication: Cardiac failure chronic
     Dosage: 25 MILLIGRAM, QD
     Route: 048
     Dates: start: 20230601, end: 20230616
  5. FLUCONAZOLE [Concomitant]
     Active Substance: FLUCONAZOLE
     Indication: Oral candidiasis
     Dosage: 150 MILLIGRAM, QD
     Route: 048
     Dates: start: 20230613
  6. FUROSEMIDE [Concomitant]
     Active Substance: FUROSEMIDE
     Indication: Cardiac failure
     Dosage: 40 MILLIGRAM, QD
     Route: 040
     Dates: start: 20230601
  7. ENOXAPARIN SODIUM [Concomitant]
     Active Substance: ENOXAPARIN SODIUM
     Indication: Thrombosis prophylaxis
     Dosage: UNK
     Route: 058
     Dates: start: 20230601
  8. PANTOPRAZOLE SODIUM [Concomitant]
     Active Substance: PANTOPRAZOLE SODIUM
     Indication: Gastritis
     Dosage: 20 MILLIGRAM, BID
     Route: 048
     Dates: start: 20230602
  9. ATORVASTATIN [Concomitant]
     Active Substance: ATORVASTATIN
     Indication: Arteriosclerosis coronary artery
     Dosage: 20 MILLIGRAM, QD
     Route: 048
     Dates: start: 20230613

REACTIONS (2)
  - Rash pruritic [Recovering/Resolving]
  - Rash [Recovering/Resolving]

NARRATIVE: CASE EVENT DATE: 20230616
